FAERS Safety Report 7713337-5 (Version None)
Quarter: 2011Q3

REPORT INFORMATION
  Report Type: 
  Country: None (occurrence: None)
  Receive Date: 20110826
  Receipt Date: 20110818
  Transmission Date: 20111222
  Serious: Yes (Other)
  Sender: FDA-Public Use
  Company Number: CHPA2011US11115

PATIENT
  Age: 50 Year
  Sex: Male

DRUGS (2)
  1. PREVACID 24 HR [Suspect]
     Indication: GASTROOESOPHAGEAL REFLUX DISEASE
     Dosage: 30 MG, QD
     Route: 048
     Dates: end: 20110801
  2. PREVACID 24 HR [Suspect]
     Dosage: 45 MG, QD
     Route: 048
     Dates: start: 20110817

REACTIONS (6)
  - THERAPEUTIC RESPONSE UNEXPECTED [None]
  - OFF LABEL USE [None]
  - CHOLECYSTITIS [None]
  - INCORRECT DRUG ADMINISTRATION DURATION [None]
  - CHOLECYSTECTOMY [None]
  - OVERDOSE [None]
